FAERS Safety Report 23727780 (Version 1)
Quarter: 2024Q2

REPORT INFORMATION
  Report Type: Spontaneous
  Country: GB (occurrence: GB)
  Receive Date: 20240410
  Receipt Date: 20240410
  Transmission Date: 20240715
  Serious: Yes (Other)
  Sender: FDA-Public Use
  Company Number: None

PATIENT
  Age: 29 Year
  Sex: Female
  Weight: 66 kg

DRUGS (1)
  1. MIRENA [Suspect]
     Active Substance: LEVONORGESTREL
     Indication: Contraception
     Dosage: 20?G/DAY
     Route: 015
     Dates: start: 20180616, end: 20190120

REACTIONS (12)
  - Coeliac disease [Recovered/Resolved]
  - Presyncope [None]
  - Abdominal pain lower [Recovered/Resolved]
  - Anaemia [None]
  - Lethargy [None]
  - Weight decreased [None]
  - Gluten sensitivity [Recovered/Resolved]
  - Loss of personal independence in daily activities [None]
  - Eating disorder [None]
  - Poor quality sleep [None]
  - Irritable bowel syndrome [None]
  - Gastrointestinal inflammation [None]

NARRATIVE: CASE EVENT DATE: 20181101
